FAERS Safety Report 6975311-6 (Version None)
Quarter: 2010Q3

REPORT INFORMATION
  Report Type: 
  Country: None (occurrence: None)
  Receive Date: 20100910
  Receipt Date: 20090226
  Transmission Date: 20110219
  Serious: No
  Sender: FDA-Public Use
  Company Number: US-WYE-H08417909

PATIENT
  Age: 72 Year
  Sex: Female
  Weight: 66.28 kg

DRUGS (2)
  1. ADVIL PM [Suspect]
     Indication: ANALGESIC THERAPY
     Route: 048
     Dates: start: 20090224, end: 20090225
  2. ADVIL PM [Suspect]
     Indication: INSOMNIA

REACTIONS (2)
  - FEELING ABNORMAL [None]
  - FORMICATION [None]
